FAERS Safety Report 9553494 (Version 1)
Quarter: 2013Q3

REPORT INFORMATION
  Report Type: Spontaneous
  Country: US (occurrence: US)
  Receive Date: 20130925
  Receipt Date: 20130925
  Transmission Date: 20140515
  Serious: Yes (Hospitalization, Other)
  Sender: FDA-Public Use
  Company Number: US-PFIZER INC-2013273653

PATIENT
  Sex: Male

DRUGS (1)
  1. XALKORI [Suspect]
     Dosage: 200 MG, Q12H

REACTIONS (3)
  - Malnutrition [Unknown]
  - Anaemia [Not Recovered/Not Resolved]
  - Eating disorder [Unknown]
